FAERS Safety Report 6184527-0 (Version None)
Quarter: 2009Q2

REPORT INFORMATION
  Report Type: 
  Country: None (occurrence: None)
  Receive Date: 20090508
  Receipt Date: 20090430
  Transmission Date: 20091009
  Serious: Yes (Death, Other)
  Sender: FDA-Public Use
  Company Number: US-AMGEN-US266305

PATIENT
  Sex: Male

DRUGS (3)
  1. ROMIPLOSTIM - BLINDED [Suspect]
     Indication: MYELODYSPLASTIC SYNDROME
     Route: 058
     Dates: start: 20070116, end: 20071211
  2. AZACITIDINE [Concomitant]
     Route: 065
     Dates: start: 20070116, end: 20071120
  3. EPOGEN [Concomitant]
     Route: 065

REACTIONS (4)
  - CHLOROMA [None]
  - MYELODYSPLASTIC SYNDROME [None]
  - MYELOFIBROSIS [None]
  - RENAL FAILURE [None]
